FAERS Safety Report 5774415-3 (Version None)
Quarter: 2008Q2

REPORT INFORMATION
  Report Type: 
  Country: None (occurrence: None)
  Receive Date: 20080616
  Receipt Date: 20080604
  Transmission Date: 20081010
  Serious: Yes (Hospitalization, Other)
  Sender: FDA-Public Use
  Company Number: US-PFIZER INC-2008032784

PATIENT
  Sex: Female
  Weight: 51.8 kg

DRUGS (7)
  1. CHANTIX [Suspect]
     Indication: SMOKING CESSATION THERAPY
     Route: 048
     Dates: start: 20080301, end: 20080402
  2. ATENOLOL [Concomitant]
     Route: 048
  3. ZETIA [Concomitant]
     Route: 048
  4. NORVASC [Concomitant]
     Route: 048
  5. ZOCOR [Concomitant]
     Route: 048
  6. PLAVIX [Concomitant]
  7. ASPIRIN [Concomitant]

REACTIONS (7)
  - ABNORMAL DREAMS [None]
  - ANXIETY [None]
  - CAROTID ARTERY STENOSIS [None]
  - CEREBROVASCULAR ACCIDENT [None]
  - DEPRESSED MOOD [None]
  - DRUG DOSE OMISSION [None]
  - SYNCOPE [None]
